FAERS Safety Report 4545976-7 (Version None)
Quarter: 2005Q1

REPORT INFORMATION
  Report Type: 
  Country: None (occurrence: None)
  Receive Date: 20050105
  Receipt Date: 20050105
  Transmission Date: 20050727
  Serious: Yes (Life-Threatening, Hospitalization)
  Sender: FDA-Public Use
  Company Number: None

PATIENT
  Sex: Female
  Weight: 36 kg

DRUGS (2)
  1. PRIMAXIN [Suspect]
     Indication: MASTOIDITIS
     Dosage: 750MG   Q 6 HOURS  INTRAVENOUS
     Route: 042
     Dates: start: 20041224, end: 20041228
  2. PRIMAXIN [Suspect]
     Indication: OTITIS MEDIA CHRONIC
     Dosage: 750MG   Q 6 HOURS  INTRAVENOUS
     Route: 042
     Dates: start: 20041224, end: 20041228

REACTIONS (6)
  - ANXIETY [None]
  - BODY TEMPERATURE INCREASED [None]
  - DYSPHAGIA [None]
  - DYSPNOEA [None]
  - FEELING ABNORMAL [None]
  - URTICARIA GENERALISED [None]
